FAERS Safety Report 4399033-3 (Version None)
Quarter: 2004Q3

REPORT INFORMATION
  Report Type: 
  Country: None (occurrence: None)
  Receive Date: 20040712
  Receipt Date: 20040628
  Transmission Date: 20050211
  Serious: Yes (Hospitalization)
  Sender: FDA-Public Use
  Company Number: 04P-163-0264975-00

PATIENT
  Age: 46 Year
  Sex: Female
  Weight: 62.5964 kg

DRUGS (4)
  1. SYNTHROID [Suspect]
     Indication: THYROID DISORDER
     Dosage: 200 MCG, 8 IN 1 WK, PER ORAL; SEE IMAGE
     Route: 048
     Dates: start: 19950101, end: 20020101
  2. SYNTHROID [Suspect]
     Indication: THYROID DISORDER
     Dosage: 200 MCG, 8 IN 1 WK, PER ORAL; SEE IMAGE
     Route: 048
     Dates: start: 20020101, end: 20031201
  3. SYNTHROID [Suspect]
     Indication: THYROID DISORDER
     Dosage: 200 MCG, 8 IN 1 WK, PER ORAL; SEE IMAGE
     Route: 048
     Dates: start: 20040101
  4. METHADONE HCL [Suspect]
     Indication: DRUG DEPENDENCE
     Dosage: PER ORAL
     Route: 048
     Dates: start: 20021201, end: 20031201

REACTIONS (11)
  - BLOOD PRESSURE DECREASED [None]
  - CARDIAC FAILURE CONGESTIVE [None]
  - CARDIOMEGALY [None]
  - DRUG DEPENDENCE [None]
  - DRUG LEVEL INCREASED [None]
  - DYSPNOEA [None]
  - EJECTION FRACTION DECREASED [None]
  - FATIGUE [None]
  - HYPERHIDROSIS [None]
  - HYPERTHYROIDISM [None]
  - WEIGHT INCREASED [None]
